FAERS Safety Report 6177092-5 (Version None)
Quarter: 2009Q2

REPORT INFORMATION
  Report Type: 
  Country: None (occurrence: None)
  Receive Date: 20090504
  Receipt Date: 20090422
  Transmission Date: 20091009
  Serious: Yes (Hospitalization)
  Sender: FDA-Public Use
  Company Number: US-CELGENEUS-163-21880-09032115

PATIENT
  Sex: Male

DRUGS (3)
  1. REVLIMID [Suspect]
     Indication: MULTIPLE MYELOMA
     Route: 048
     Dates: start: 20090301
  2. REVLIMID [Suspect]
     Route: 048
     Dates: start: 20081101, end: 20090101
  3. REVLIMID [Suspect]
     Route: 048
     Dates: start: 20080401, end: 20080701

REACTIONS (3)
  - DECREASED ACTIVITY [None]
  - OESOPHAGEAL RUPTURE [None]
  - PNEUMONIA [None]
